FAERS Safety Report 9236246 (Version 1)
Quarter: 2013Q2

REPORT INFORMATION
  Report Type: Spontaneous
  Country: US (occurrence: US)
  Receive Date: 20130417
  Receipt Date: 20130417
  Transmission Date: 20140414
  Serious: No
  Sender: FDA-Public Use
  Company Number: US-GLAXOSMITHKLINE-A0981302A

PATIENT
  Sex: Female

DRUGS (2)
  1. LUXIQ [Suspect]
     Indication: DERMATITIS
     Route: 061
  2. SYNTHROID [Concomitant]

REACTIONS (3)
  - Drug administration error [Unknown]
  - Therapeutic response unexpected [Unknown]
  - Application site pain [Unknown]
